FAERS Safety Report 14706340 (Version 1)
Quarter: 2018Q2

REPORT INFORMATION
  Report Type: Spontaneous
  Country: DE (occurrence: DE)
  Receive Date: 20180402
  Receipt Date: 20180402
  Transmission Date: 20180711
  Serious: Yes (Death, Hospitalization)
  Sender: FDA-Public Use
  Company Number: DE-MYLANLABS-2018M1019424

PATIENT
  Age: 73 Year
  Sex: Male
  Weight: 84 kg

DRUGS (2)
  1. REMICADE [Suspect]
     Active Substance: INFLIXIMAB
     Indication: PRODUCT USED FOR UNKNOWN INDICATION
     Dosage: 250 MG, UNK (DOSAGE FORM: LYOPHILIZED POWDER, 250 MG)
     Route: 042
  2. METHOTREXATE. [Suspect]
     Active Substance: METHOTREXATE
     Indication: PRODUCT USED FOR UNKNOWN INDICATION
     Dosage: 15 MG, QW (DOSAGE FORM: UNSPECIFIED)
     Route: 065
     Dates: start: 20140701

REACTIONS (9)
  - Cardiac failure [Fatal]
  - Escherichia urinary tract infection [Fatal]
  - Atrial fibrillation [Fatal]
  - Pneumonia [Fatal]
  - Spinal compression fracture [Fatal]
  - Fall [Fatal]
  - Staphylococcal sepsis [Fatal]
  - Sinus node dysfunction [Fatal]
  - Pneumococcal sepsis [Fatal]

NARRATIVE: CASE EVENT DATE: 20160706
